FAERS Safety Report 25040958 (Version 1)
Quarter: 2025Q1

REPORT INFORMATION
  Report Type: Spontaneous
  Country: JP (occurrence: JP)
  Receive Date: 20250305
  Receipt Date: 20250305
  Transmission Date: 20250408
  Serious: Yes (Other)
  Sender: MYLAN
  Company Number: JP-MYLANLABS-2025M1017759

PATIENT
  Age: 58 Year
  Sex: Male

DRUGS (10)
  1. LYRICA [Suspect]
     Active Substance: PREGABALIN
     Indication: Pruritus
  2. PREDNISOLONE [Suspect]
     Active Substance: PREDNISOLONE
     Indication: Chronic spontaneous urticaria
  3. OLOPATADINE HYDROCHLORIDE [Suspect]
     Active Substance: OLOPATADINE HYDROCHLORIDE
     Indication: Chronic spontaneous urticaria
  4. BEPOTASTINE [Suspect]
     Active Substance: BEPOTASTINE
     Indication: Chronic spontaneous urticaria
  5. DAPSONE [Suspect]
     Active Substance: DAPSONE
     Indication: Chronic spontaneous urticaria
  6. LEVOCETIRIZINE [Concomitant]
     Active Substance: LEVOCETIRIZINE
     Indication: Chronic spontaneous urticaria
  7. CIMETIDINE [Concomitant]
     Active Substance: CIMETIDINE
     Indication: Chronic spontaneous urticaria
  8. BETAMETHASONE [Concomitant]
     Active Substance: BETAMETHASONE
     Indication: Pruritus
  9. BETAMETHASONE [Concomitant]
     Active Substance: BETAMETHASONE
  10. MONTELUKAST [Concomitant]
     Active Substance: MONTELUKAST
     Indication: Chronic spontaneous urticaria

REACTIONS (3)
  - Drug ineffective [Unknown]
  - Dysgeusia [Recovering/Resolving]
  - Off label use [Unknown]
